APPROVED DRUG PRODUCT: QUINIDINE GLUCONATE
Active Ingredient: QUINIDINE GLUCONATE
Strength: 324MG
Dosage Form/Route: TABLET, EXTENDED RELEASE;ORAL
Application: A212589 | Product #001 | TE Code: AB
Applicant: HIBROW HEALTHCARE PRIVATE LTD
Approved: Sep 17, 2021 | RLD: No | RS: No | Type: RX